FAERS Safety Report 25914417 (Version 1)
Quarter: 2025Q4

REPORT INFORMATION
  Report Type: Spontaneous
  Country: AU (occurrence: AU)
  Receive Date: 20251013
  Receipt Date: 20251013
  Transmission Date: 20260117
  Serious: Yes (Other)
  Sender: INCYTE
  Company Number: AU-002147023-NVSC2025AU155318

PATIENT
  Age: 19 Year

DRUGS (6)
  1. RUXOLITINIB [Suspect]
     Active Substance: RUXOLITINIB
     Indication: Haemophagocytic lymphohistiocytosis
     Dosage: 10 MG, Q12H
     Route: 065
  2. RUXOLITINIB [Suspect]
     Active Substance: RUXOLITINIB
     Dosage: 40 MG, Q12H
     Route: 065
  3. RITUXIMAB [Suspect]
     Active Substance: RITUXIMAB
     Indication: Epstein-Barr viraemia
     Dosage: UNK
     Route: 065
  4. METHYLPREDNISOLONE [Suspect]
     Active Substance: METHYLPREDNISOLONE
     Indication: Cholecystitis acute
     Dosage: 1 G, TID
  5. INFLIXIMAB [Suspect]
     Active Substance: INFLIXIMAB
     Indication: Cholecystitis acute
     Dosage: UNK
     Route: 065
  6. DEXAMETHASONE [Suspect]
     Active Substance: DEXAMETHASONE
     Indication: Cholecystitis acute
     Dosage: UNK

REACTIONS (2)
  - COVID-19 [Unknown]
  - Drug ineffective for unapproved indication [Unknown]
